FAERS Safety Report 19973702 (Version 2)
Quarter: 2022Q2

REPORT INFORMATION
  Report Type: Spontaneous
  Country: US (occurrence: US)
  Receive Date: 20211020
  Receipt Date: 20220513
  Transmission Date: 20220721
  Serious: Yes (Other)
  Sender: FDA-Public Use
  Company Number: US-SA-SAC20211014001181

PATIENT
  Age: 64 Year
  Sex: Female

DRUGS (3)
  1. AUBAGIO [Suspect]
     Active Substance: TERIFLUNOMIDE
     Indication: Multiple sclerosis
     Dosage: 14 MG, QD
     Route: 048
     Dates: start: 20200204
  2. AUBAGIO [Suspect]
     Active Substance: TERIFLUNOMIDE
     Indication: Myopathy
  3. AUBAGIO [Suspect]
     Active Substance: TERIFLUNOMIDE
     Indication: Musculoskeletal disorder

REACTIONS (2)
  - Multiple sclerosis relapse [Recovered/Resolved]
  - Product use in unapproved indication [Unknown]

NARRATIVE: CASE EVENT DATE: 20200204
